FAERS Safety Report 25526132 (Version 2)
Quarter: 2025Q3

REPORT INFORMATION
  Report Type: Spontaneous
  Country: EU (occurrence: EU)
  Receive Date: 20250707
  Receipt Date: 20250718
  Transmission Date: 20251021
  Serious: Yes (Other)
  Sender: REGENERON
  Company Number: EU-BAYER-2025A088405

PATIENT
  Sex: Female

DRUGS (1)
  1. EYLEA HD [Suspect]
     Active Substance: AFLIBERCEPT
     Indication: Age-related macular degeneration
     Route: 031
     Dates: start: 20250619

REACTIONS (6)
  - Blindness unilateral [Not Recovered/Not Resolved]
  - Eye inflammation [Recovering/Resolving]
  - Vitritis [Recovering/Resolving]
  - Deposit eye [Recovering/Resolving]
  - Anterior chamber flare [Recovering/Resolving]
  - Eye pain [Recovered/Resolved]

NARRATIVE: CASE EVENT DATE: 20250619
